FAERS Safety Report 17109792 (Version 2)
Quarter: 2019Q4

REPORT INFORMATION
  Report Type: Report from Study
  Country: AR (occurrence: AR)
  Receive Date: 20191204
  Receipt Date: 20191219
  Transmission Date: 20200122
  Serious: Yes (Other)
  Sender: FDA-Public Use
  Company Number: AR-ROCHE-2482028

PATIENT

DRUGS (1)
  1. OCRELIZUMAB. [Suspect]
     Active Substance: OCRELIZUMAB
     Indication: PRIMARY PROGRESSIVE MULTIPLE SCLEROSIS
     Route: 065

REACTIONS (1)
  - Pneumonia [Recovered/Resolved]
